FAERS Safety Report 12623074 (Version 3)
Quarter: 2016Q4

REPORT INFORMATION
  Report Type: Report from Study
  Country: GB (occurrence: GB)
  Receive Date: 20160804
  Receipt Date: 20161007
  Transmission Date: 20170207
  Serious: Yes (Hospitalization)
  Sender: FDA-Public Use
  Company Number: GB-JNJFOC-20160718677

PATIENT
  Age: 27 Year
  Sex: Female

DRUGS (1)
  1. STELARA [Suspect]
     Active Substance: USTEKINUMAB
     Indication: PSORIASIS
     Route: 058
     Dates: end: 201607

REACTIONS (6)
  - Adverse event [Unknown]
  - Pain [Unknown]
  - Psoriasis [Unknown]
  - Migraine [Unknown]
  - Skin disorder [Unknown]
  - Meningitis viral [Unknown]

NARRATIVE: CASE EVENT DATE: 201607
